FAERS Safety Report 24157456 (Version 2)
Quarter: 2024Q3

REPORT INFORMATION
  Report Type: Report from Study
  Country: CN (occurrence: CN)
  Receive Date: 20240731
  Receipt Date: 20240819
  Transmission Date: 20241016
  Serious: Yes (Hospitalization)
  Sender: ABBVIE
  Company Number: CN-ABBVIE-5857645

PATIENT
  Age: 61 Year
  Sex: Male
  Weight: 75 kg

DRUGS (24)
  1. RINVOQ [Suspect]
     Active Substance: UPADACITINIB
     Indication: Dermatitis atopic
     Dosage: 15 MILLIGRAM
     Route: 048
     Dates: start: 20240407, end: 20240618
  2. RINVOQ [Suspect]
     Active Substance: UPADACITINIB
     Indication: Dermatitis atopic
     Dosage: 15 MILLIGRAM
     Route: 048
     Dates: start: 20240307, end: 20240404
  3. RINVOQ [Suspect]
     Active Substance: UPADACITINIB
     Indication: Dermatitis atopic
     Dosage: 15 MILLIGRAM
     Route: 048
     Dates: start: 20231201, end: 20231228
  4. VITAMIN D2 [Concomitant]
     Active Substance: ERGOCALCIFEROL
     Indication: Dermatitis atopic
     Dosage: 2 TABLET
     Route: 048
     Dates: start: 20231128, end: 20231227
  5. LORATADINE [Concomitant]
     Active Substance: LORATADINE
     Indication: Dermatitis atopic
     Dosage: 1 TABLET
     Route: 048
     Dates: start: 202309, end: 20240416
  6. Shen song yang xin [Concomitant]
     Indication: Coronary artery disease
     Dosage: 1 GRAIN
     Route: 048
     Dates: start: 2010
  7. METHYLPREDNISOLONE [Concomitant]
     Active Substance: METHYLPREDNISOLONE
     Indication: Dermatitis atopic
     Dosage: 1 TABLET
     Route: 048
     Dates: start: 20231127, end: 20231228
  8. POTASSIUM CITRATE [Concomitant]
     Active Substance: POTASSIUM CITRATE
     Indication: Dermatitis atopic
     Dosage: 1.45 GRAM
     Route: 048
     Dates: start: 20231128, end: 202401
  9. COMPOUND BETAMETHASONE [Concomitant]
     Indication: Dermatitis atopic
     Route: 030
     Dates: start: 20240227, end: 20240227
  10. PREDNISONE ACETATE [Concomitant]
     Active Substance: PREDNISONE ACETATE
     Indication: Dermatitis atopic
     Dosage: TIME INTERVAL: 0.33333333 DAYS: 30 MILLIGRAM
     Route: 048
     Dates: start: 20240322, end: 20240329
  11. PREDNISONE ACETATE [Concomitant]
     Active Substance: PREDNISONE ACETATE
     Indication: Dermatitis atopic
     Dosage: 15 MILLIGRAM
     Route: 048
     Dates: start: 20240415, end: 20240617
  12. PREDNISONE ACETATE [Concomitant]
     Active Substance: PREDNISONE ACETATE
     Indication: Dermatitis atopic
     Dosage: 25 MILLIGRAM
     Route: 048
     Dates: start: 20240330, end: 20240414
  13. PREDNISONE ACETATE [Concomitant]
     Active Substance: PREDNISONE ACETATE
     Indication: Dermatitis atopic
     Dosage: TIME INTERVAL: 0.33333333 DAYS: 90 MILLIGRAM
     Route: 048
     Dates: start: 20240618
  14. ATORVASTATIN [Concomitant]
     Active Substance: ATORVASTATIN
     Indication: Coronary artery disease
     Dosage: 1 TABLET
     Route: 048
     Dates: start: 2020
  15. LEVOCETIRIZINE HYDROCHLORIDE [Concomitant]
     Active Substance: LEVOCETIRIZINE HYDROCHLORIDE
     Indication: Dermatitis atopic
     Dosage: 5 MILLIGRAM
     Route: 048
     Dates: start: 20240506
  16. HALOMETASONE [Concomitant]
     Active Substance: HALOMETASONE
     Indication: Dermatitis atopic
     Route: 062
     Dates: start: 20231127, end: 20240416
  17. PANTOPRAZOLE SODIUM [Concomitant]
     Active Substance: PANTOPRAZOLE SODIUM
     Indication: Dermatitis atopic
     Dosage: ENTERIC-COATED TABLETS?40 MILLIGRAM
     Dates: start: 20231128, end: 20231226
  18. CHLORPHENIRAMINE MALEATE [Concomitant]
     Active Substance: CHLORPHENIRAMINE MALEATE
     Indication: Dermatitis atopic
     Dosage: 1 TABLET
     Route: 048
     Dates: start: 20240430, end: 20240510
  19. POTASSIUM CITRATE [Concomitant]
     Active Substance: POTASSIUM CITRATE
     Indication: Dermatitis atopic
     Dosage: 1.45 GRAM
     Route: 048
     Dates: start: 20231128, end: 202401
  20. CALCIUM CARBONATE\CHOLECALCIFEROL [Concomitant]
     Active Substance: CALCIUM CARBONATE\CHOLECALCIFEROL
     Indication: Dermatitis atopic
     Dosage: 1 TABLET
     Dates: start: 202311
  21. Compound glycyrrhizin [Concomitant]
     Indication: Dermatitis atopic
     Dosage: TIME INTERVAL: 0.33333333 DAYS: 6 TABLET
     Route: 048
     Dates: start: 20240322
  22. ISOSORBIDE MONONITRATE [Concomitant]
     Active Substance: ISOSORBIDE MONONITRATE
     Indication: Coronary artery disease
     Dosage: 1 TABLET
     Route: 048
     Dates: start: 2010
  23. ASPIRIN [Concomitant]
     Active Substance: ASPIRIN
     Indication: Coronary artery disease
     Dosage: 1 TABLET?ENTERIC-COATED TABLETS
     Route: 048
     Dates: start: 2010
  24. VALSARTAN [Concomitant]
     Active Substance: VALSARTAN
     Indication: Hypertension
     Dosage: 1 GRAIN
     Route: 048
     Dates: start: 202309

REACTIONS (2)
  - Arthralgia [Unknown]
  - Emphysema [Unknown]

NARRATIVE: CASE EVENT DATE: 20231230
